FAERS Safety Report 15325547 (Version 1)
Quarter: 2018Q3

REPORT INFORMATION
  Report Type: Spontaneous
  Country: GB (occurrence: GB)
  Receive Date: 20180828
  Receipt Date: 20180828
  Transmission Date: 20181010
  Serious: Yes (Other)
  Sender: FDA-Public Use
  Company Number: GB-PFIZER INC-2018337533

PATIENT
  Age: 37 Year
  Sex: Female
  Weight: 67.12 kg

DRUGS (1)
  1. CHAMPIX [Suspect]
     Active Substance: VARENICLINE TARTRATE
     Indication: EX-TOBACCO USER
     Dosage: 2 MG, 1X/DAY
     Route: 048
     Dates: start: 20180717, end: 2018

REACTIONS (5)
  - Skin tightness [Unknown]
  - Hypoaesthesia [Unknown]
  - Insomnia [Unknown]
  - Nasopharyngitis [Unknown]
  - Pain in extremity [Not Recovered/Not Resolved]

NARRATIVE: CASE EVENT DATE: 20180723
